FAERS Safety Report 6524973-6 (Version None)
Quarter: 2009Q4

REPORT INFORMATION
  Report Type: 
  Country: None (occurrence: None)
  Receive Date: 20091231
  Receipt Date: 20091231
  Transmission Date: 20100525
  Serious: Yes (Hospitalization)
  Sender: FDA-Public Use
  Company Number: None

PATIENT
  Age: 58 Year
  Sex: Male
  Weight: 86.2 kg

DRUGS (1)
  1. CLOZAPINE [Suspect]
     Indication: BIPOLAR I DISORDER
     Dosage: 200 MG AT BEDTIME PO
     Route: 048
     Dates: start: 20080916, end: 20091001

REACTIONS (2)
  - FALL [None]
  - ORTHOSTATIC HYPOTENSION [None]
